FAERS Safety Report 13336666 (Version 1)
Quarter: 2017Q1

REPORT INFORMATION
  Report Type: Spontaneous
  Country: US (occurrence: US)
  Receive Date: 20170314
  Receipt Date: 20170314
  Transmission Date: 20170428
  Serious: No
  Sender: FDA-Public Use
  Company Number: None

PATIENT
  Age: 71 Year
  Sex: Male
  Weight: 65.7 kg

DRUGS (1)
  1. LIDOCAINE. [Suspect]
     Active Substance: LIDOCAINE
     Indication: PAIN
     Dosage: 2 UNITS EVERY DAY TOP
     Route: 061
     Dates: start: 20170216, end: 20170227

REACTIONS (3)
  - Product adhesion issue [None]
  - Therapeutic product ineffective [None]
  - Product quality issue [None]

NARRATIVE: CASE EVENT DATE: 20170227
